FAERS Safety Report 4333282-5 (Version None)
Quarter: 2004Q2

REPORT INFORMATION
  Report Type: 
  Country: None (occurrence: None)
  Receive Date: 20040406
  Receipt Date: 20040329
  Transmission Date: 20050107
  Serious: Yes (Hospitalization)
  Sender: FDA-Public Use
  Company Number: 7719

PATIENT
  Age: 53 Year
  Sex: Female

DRUGS (7)
  1. CARBOPLATIN [Suspect]
     Indication: ENDOMETRIAL CANCER
     Dosage: 760 MG FREQ
     Route: 042
     Dates: start: 20040105, end: 20040105
  2. PACLITAXEL [Suspect]
     Indication: ENDOMETRIAL CANCER
     Dosage: 318 MG FREQ
     Route: 042
     Dates: start: 20040105, end: 20040105
  3. DEXAMETHASONE [Concomitant]
  4. DOMPERIDONE [Concomitant]
  5. CO-TENIDONE [Concomitant]
  6. FLUOXETINE [Concomitant]
  7. GABAPENTIN [Concomitant]

REACTIONS (4)
  - CHILLS [None]
  - HERPES ZOSTER [None]
  - NEUTROPENIA [None]
  - PYREXIA [None]
